FAERS Safety Report 25411550 (Version 1)
Quarter: 2025Q2

REPORT INFORMATION
  Report Type: Other
  Country: US (occurrence: US)
  Receive Date: 20250609
  Receipt Date: 20250609
  Transmission Date: 20250716
  Serious: No
  Sender: ALEMBIC
  Company Number: None

PATIENT

DRUGS (1)
  1. ASENAPINE [Suspect]
     Active Substance: ASENAPINE
     Indication: Bipolar disorder
     Route: 060
     Dates: start: 20250327, end: 20250426

REACTIONS (4)
  - Product solubility abnormal [Unknown]
  - Restlessness [Unknown]
  - Drug ineffective [Unknown]
  - Treatment noncompliance [Unknown]

NARRATIVE: CASE EVENT DATE: 20250101
